FAERS Safety Report 18783672 (Version 1)
Quarter: 2021Q1

REPORT INFORMATION
  Report Type: Report from Study
  Country: US (occurrence: US)
  Receive Date: 20210125
  Receipt Date: 20210125
  Transmission Date: 20210419
  Serious: Yes (Other)
  Sender: FDA-Public Use
  Company Number: US-BAYER-2021-030907

PATIENT
  Age: 67 Year
  Sex: Female
  Weight: 136.05 kg

DRUGS (2)
  1. ADEMPAS [Suspect]
     Active Substance: RIOCIGUAT
     Indication: PULMONARY ARTERIAL HYPERTENSION
     Dosage: 0.5 MG, TID
     Route: 048
     Dates: start: 20201229
  2. ELIQUIS [Concomitant]
     Active Substance: APIXABAN

REACTIONS (4)
  - Fluid intake reduced [None]
  - Oxygen saturation decreased [None]
  - Dizziness [None]
  - Heart rate decreased [None]

NARRATIVE: CASE EVENT DATE: 20210116
